FAERS Safety Report 19687666 (Version 1)
Quarter: 2021Q3

REPORT INFORMATION
  Report Type: Spontaneous
  Country: CA (occurrence: CA)
  Receive Date: 20210811
  Receipt Date: 20210811
  Transmission Date: 20211014
  Serious: Yes (Hospitalization)
  Sender: FDA-Public Use
  Company Number: CA-TEVA-2021-CA-1939655

PATIENT
  Age: 60 Year
  Sex: Male

DRUGS (16)
  1. MORPHINE [Interacting]
     Active Substance: MORPHINE
     Route: 065
  2. METHADONE [Interacting]
     Active Substance: METHADONE HYDROCHLORIDE
     Indication: DRUG DEPENDENCE
     Dosage: 50 MILLIGRAM DAILY;
     Route: 048
  3. VITAMIN B1 [Interacting]
     Active Substance: THIAMINE HYDROCHLORIDE
     Indication: PRODUCT USED FOR UNKNOWN INDICATION
     Route: 048
  4. CIPROFLOXACIN. [Interacting]
     Active Substance: CIPROFLOXACIN
     Indication: PNEUMONIA
     Route: 065
  5. CLINDAMYCIN [CLINDAMYCIN PHOSPHATE] [Interacting]
     Active Substance: CLINDAMYCIN PHOSPHATE
     Indication: PNEUMONIA
     Route: 065
  6. CIPROFLOXACIN. [Interacting]
     Active Substance: CIPROFLOXACIN
     Indication: PNEUMONIA
     Route: 042
  7. IPRATROPIUM BROMIDE. [Interacting]
     Active Substance: IPRATROPIUM BROMIDE
     Indication: PNEUMONIA
     Route: 065
  8. LEVOMEPROMAZINE [Interacting]
     Active Substance: LEVOMEPROMAZINE
     Indication: PRODUCT USED FOR UNKNOWN INDICATION
     Route: 048
  9. CLINDAMYCIN [CLINDAMYCIN PHOSPHATE] [Interacting]
     Active Substance: CLINDAMYCIN PHOSPHATE
     Indication: ASPIRATION
     Dosage: 1800 MILLIGRAM DAILY;
     Route: 042
  10. DALTEPARIN SODIUM [Interacting]
     Active Substance: DALTEPARIN SODIUM
     Indication: PRODUCT USED FOR UNKNOWN INDICATION
     Route: 058
  11. MORPHINE [Suspect]
     Active Substance: MORPHINE
     Indication: PROCEDURAL PAIN
     Route: 048
  12. ACETAMINOPHEN AND CODEINE [Interacting]
     Active Substance: ACETAMINOPHEN\CODEINE PHOSPHATE
     Indication: PROCEDURAL PAIN
     Route: 048
  13. MORPHINE [Interacting]
     Active Substance: MORPHINE
     Indication: PROCEDURAL PAIN
     Route: 058
  14. SALBUTAMOL [Interacting]
     Active Substance: ALBUTEROL
     Indication: PNEUMONIA
     Route: 065
  15. CEFUROXIME SODIUM. [Interacting]
     Active Substance: CEFUROXIME SODIUM
     Indication: PNEUMONIA
     Dosage: 2250 MILLIGRAM DAILY;
     Route: 065
  16. FOLIC ACID. [Interacting]
     Active Substance: FOLIC ACID
     Indication: PRODUCT USED FOR UNKNOWN INDICATION
     Route: 048

REACTIONS (5)
  - Miosis [Not Recovered/Not Resolved]
  - Respiratory depression [Not Recovered/Not Resolved]
  - Depressed level of consciousness [Not Recovered/Not Resolved]
  - Drug interaction [Not Recovered/Not Resolved]
  - Toxicity to various agents [Not Recovered/Not Resolved]
